FAERS Safety Report 7921718-X (Version None)
Quarter: 2011Q4

REPORT INFORMATION
  Report Type: 
  Country: None (occurrence: None)
  Receive Date: 20111117
  Receipt Date: 20110921
  Transmission Date: 20120403
  Serious: No
  Sender: FDA-Public Use
  Company Number: US-GLAXOSMITHKLINE-A0946081A

PATIENT
  Age: 60 Year
  Sex: Female

DRUGS (1)
  1. RYTHMOL SR [Suspect]
     Dosage: 150MG THREE TIMES PER DAY
     Route: 065
     Dates: start: 20100801

REACTIONS (1)
  - NO ADVERSE EVENT [None]
